FAERS Safety Report 19706654 (Version 10)
Quarter: 2025Q1

REPORT INFORMATION
  Report Type: Spontaneous
  Country: CA (occurrence: CA)
  Receive Date: 20210817
  Receipt Date: 20250302
  Transmission Date: 20250409
  Serious: Yes (Hospitalization, Other)
  Sender: ALEXION PHARMACEUTICALS
  Company Number: 2021A674235

PATIENT
  Age: 49 Year

DRUGS (86)
  1. PROPOFOL [Interacting]
     Active Substance: PROPOFOL
     Indication: Induction of anaesthesia
     Route: 065
  2. PROPOFOL [Interacting]
     Active Substance: PROPOFOL
  3. QUETIAPINE FUMARATE [Interacting]
     Active Substance: QUETIAPINE FUMARATE
     Indication: Depression
     Dosage: 25 MG, 1 DOSE 12 HOURS
  4. QUETIAPINE FUMARATE [Interacting]
     Active Substance: QUETIAPINE FUMARATE
     Indication: Anxiety
     Dosage: 25 MG, 2 DOSE DAILY
  5. QUETIAPINE FUMARATE [Interacting]
     Active Substance: QUETIAPINE FUMARATE
     Indication: Hypotension
     Dosage: 25 MG, 2 DOSE DAILY
  6. QUETIAPINE FUMARATE [Interacting]
     Active Substance: QUETIAPINE FUMARATE
     Dosage: 25 MG, 1 DOSE 12 HOURS
  7. QUETIAPINE FUMARATE [Interacting]
     Active Substance: QUETIAPINE FUMARATE
     Dosage: 50 MILLIGRAM, QD
  8. QUETIAPINE FUMARATE [Interacting]
     Active Substance: QUETIAPINE FUMARATE
     Dosage: 50 MILLIGRAM, QD
  9. QUETIAPINE FUMARATE [Interacting]
     Active Substance: QUETIAPINE FUMARATE
     Dosage: 50 MILLIGRAM, QD
  10. QUETIAPINE FUMARATE [Interacting]
     Active Substance: QUETIAPINE FUMARATE
     Dosage: 50 MILLIGRAM, QD
  11. QUETIAPINE FUMARATE [Interacting]
     Active Substance: QUETIAPINE FUMARATE
     Dosage: 50 MILLIGRAM, QD
  12. QUETIAPINE FUMARATE [Interacting]
     Active Substance: QUETIAPINE FUMARATE
     Dosage: 50 MILLIGRAM, QD
  13. QUETIAPINE FUMARATE [Interacting]
     Active Substance: QUETIAPINE FUMARATE
     Dosage: 50 MILLIGRAM, QD
  14. QUETIAPINE FUMARATE [Interacting]
     Active Substance: QUETIAPINE FUMARATE
     Dosage: 50 MILLIGRAM, QD
  15. QUETIAPINE FUMARATE [Interacting]
     Active Substance: QUETIAPINE FUMARATE
     Dosage: 50 MILLIGRAM, QD
  16. QUETIAPINE FUMARATE [Interacting]
     Active Substance: QUETIAPINE FUMARATE
     Dosage: 50 MILLIGRAM, QD
  17. QUETIAPINE FUMARATE [Interacting]
     Active Substance: QUETIAPINE FUMARATE
     Dosage: 50 MILLIGRAM, QD
  18. QUETIAPINE FUMARATE [Interacting]
     Active Substance: QUETIAPINE FUMARATE
     Dosage: 50 MILLIGRAM, QD
  19. QUETIAPINE FUMARATE [Interacting]
     Active Substance: QUETIAPINE FUMARATE
     Dosage: 50 MILLIGRAM, QD
  20. QUETIAPINE FUMARATE [Interacting]
     Active Substance: QUETIAPINE FUMARATE
     Dosage: 50 MILLIGRAM, QD
  21. QUETIAPINE FUMARATE [Interacting]
     Active Substance: QUETIAPINE FUMARATE
     Dosage: 50 MILLIGRAM, QD
  22. QUETIAPINE FUMARATE [Interacting]
     Active Substance: QUETIAPINE FUMARATE
     Dosage: 50 MILLIGRAM, QD
  23. QUETIAPINE FUMARATE [Interacting]
     Active Substance: QUETIAPINE FUMARATE
     Dosage: 50 MILLIGRAM, QD
  24. QUETIAPINE FUMARATE [Interacting]
     Active Substance: QUETIAPINE FUMARATE
  25. CLONAZEPAM [Interacting]
     Active Substance: CLONAZEPAM
     Indication: Depression
  26. CLONAZEPAM [Interacting]
     Active Substance: CLONAZEPAM
     Indication: Anxiety
  27. CLONAZEPAM [Interacting]
     Active Substance: CLONAZEPAM
  28. CLONAZEPAM [Interacting]
     Active Substance: CLONAZEPAM
  29. CLONAZEPAM [Interacting]
     Active Substance: CLONAZEPAM
  30. CLONAZEPAM [Interacting]
     Active Substance: CLONAZEPAM
  31. CLONAZEPAM [Interacting]
     Active Substance: CLONAZEPAM
  32. CLONAZEPAM [Interacting]
     Active Substance: CLONAZEPAM
  33. CLONAZEPAM [Interacting]
     Active Substance: CLONAZEPAM
  34. CLONAZEPAM [Interacting]
     Active Substance: CLONAZEPAM
  35. CLONAZEPAM [Interacting]
     Active Substance: CLONAZEPAM
  36. CLONAZEPAM [Interacting]
     Active Substance: CLONAZEPAM
  37. CLONAZEPAM [Interacting]
     Active Substance: CLONAZEPAM
  38. CLONAZEPAM [Interacting]
     Active Substance: CLONAZEPAM
  39. CLONAZEPAM [Interacting]
     Active Substance: CLONAZEPAM
  40. CLONAZEPAM [Interacting]
     Active Substance: CLONAZEPAM
  41. CLONAZEPAM [Interacting]
     Active Substance: CLONAZEPAM
  42. CLONAZEPAM [Interacting]
     Active Substance: CLONAZEPAM
  43. CLONAZEPAM [Interacting]
     Active Substance: CLONAZEPAM
  44. CLONAZEPAM [Interacting]
     Active Substance: CLONAZEPAM
  45. CLONAZEPAM [Interacting]
     Active Substance: CLONAZEPAM
  46. CLONAZEPAM [Interacting]
     Active Substance: CLONAZEPAM
  47. CLONAZEPAM [Interacting]
     Active Substance: CLONAZEPAM
  48. CLONAZEPAM [Interacting]
     Active Substance: CLONAZEPAM
  49. CLONAZEPAM [Interacting]
     Active Substance: CLONAZEPAM
  50. CLONAZEPAM [Interacting]
     Active Substance: CLONAZEPAM
  51. DIAZEPAM [Interacting]
     Active Substance: DIAZEPAM
     Indication: Preoperative care
     Route: 065
  52. DIAZEPAM [Interacting]
     Active Substance: DIAZEPAM
     Route: 065
  53. FENTANYL [Interacting]
     Active Substance: FENTANYL
     Indication: Anaesthesia
  54. FENTANYL [Interacting]
     Active Substance: FENTANYL
  55. FLUVOXAMINE [Interacting]
     Active Substance: FLUVOXAMINE
     Indication: Product used for unknown indication
     Route: 065
  56. MEPERIDINE [Interacting]
     Active Substance: MEPERIDINE
     Indication: Product used for unknown indication
     Route: 065
  57. METHYLENE BLUE [Interacting]
     Active Substance: METHYLENE BLUE
     Indication: Hypotension
     Route: 065
  58. METHYLENE BLUE [Interacting]
     Active Substance: METHYLENE BLUE
     Indication: Anaesthesia
     Route: 065
  59. MIDAZOLAM HYDROCHLORIDE [Interacting]
     Active Substance: MIDAZOLAM HYDROCHLORIDE
     Indication: Anaesthesia
     Route: 065
  60. MIDAZOLAM HYDROCHLORIDE [Interacting]
     Active Substance: MIDAZOLAM HYDROCHLORIDE
     Indication: Hypotension
     Route: 065
  61. MIDAZOLAM HYDROCHLORIDE [Interacting]
     Active Substance: MIDAZOLAM HYDROCHLORIDE
     Route: 065
  62. MIDAZOLAM HYDROCHLORIDE [Interacting]
     Active Substance: MIDAZOLAM HYDROCHLORIDE
     Route: 065
  63. NOREPINEPHRINE [Interacting]
     Active Substance: NOREPINEPHRINE
     Indication: Hypotension
     Route: 065
  64. PAROXETINE HYDROCHLORIDE [Interacting]
     Active Substance: PAROXETINE HYDROCHLORIDE
     Indication: Depression
     Route: 065
  65. PAROXETINE HYDROCHLORIDE [Interacting]
     Active Substance: PAROXETINE HYDROCHLORIDE
     Indication: Anxiety
     Route: 065
  66. PAROXETINE HYDROCHLORIDE [Interacting]
     Active Substance: PAROXETINE HYDROCHLORIDE
     Route: 065
  67. PAROXETINE HYDROCHLORIDE [Interacting]
     Active Substance: PAROXETINE HYDROCHLORIDE
     Route: 065
  68. PAROXETINE HYDROCHLORIDE [Interacting]
     Active Substance: PAROXETINE HYDROCHLORIDE
     Route: 065
  69. PAROXETINE HYDROCHLORIDE [Interacting]
     Active Substance: PAROXETINE HYDROCHLORIDE
     Route: 065
  70. PAROXETINE HYDROCHLORIDE [Interacting]
     Active Substance: PAROXETINE HYDROCHLORIDE
     Route: 065
  71. PAROXETINE HYDROCHLORIDE [Interacting]
     Active Substance: PAROXETINE HYDROCHLORIDE
     Route: 065
  72. PAROXETINE HYDROCHLORIDE [Interacting]
     Active Substance: PAROXETINE HYDROCHLORIDE
     Route: 065
  73. PAROXETINE HYDROCHLORIDE [Interacting]
     Active Substance: PAROXETINE HYDROCHLORIDE
     Route: 065
  74. PAROXETINE HYDROCHLORIDE [Interacting]
     Active Substance: PAROXETINE HYDROCHLORIDE
     Route: 065
  75. PAROXETINE HYDROCHLORIDE [Interacting]
     Active Substance: PAROXETINE HYDROCHLORIDE
     Route: 065
  76. PAROXETINE HYDROCHLORIDE [Interacting]
     Active Substance: PAROXETINE HYDROCHLORIDE
     Route: 065
  77. PAROXETINE HYDROCHLORIDE [Interacting]
     Active Substance: PAROXETINE HYDROCHLORIDE
     Route: 065
  78. PAROXETINE HYDROCHLORIDE [Interacting]
     Active Substance: PAROXETINE HYDROCHLORIDE
     Route: 065
  79. PAROXETINE HYDROCHLORIDE [Interacting]
     Active Substance: PAROXETINE HYDROCHLORIDE
     Route: 065
  80. PAROXETINE HYDROCHLORIDE [Interacting]
     Active Substance: PAROXETINE HYDROCHLORIDE
     Route: 065
  81. ROCURONIUM [Interacting]
     Active Substance: ROCURONIUM BROMIDE
     Indication: Hypotonia
     Route: 065
  82. ROCURONIUM [Interacting]
     Active Substance: ROCURONIUM BROMIDE
     Indication: Anxiety
  83. ROCURONIUM [Interacting]
     Active Substance: ROCURONIUM BROMIDE
     Indication: Depression
  84. SEVOFLURANE [Interacting]
     Active Substance: SEVOFLURANE
     Indication: Maintenance of anaesthesia
  85. SEVOFLURANE [Interacting]
     Active Substance: SEVOFLURANE
     Indication: Anxiety
     Route: 065
  86. SEVOFLURANE [Interacting]
     Active Substance: SEVOFLURANE
     Indication: Depression

REACTIONS (12)
  - Drug interaction [Unknown]
  - Alanine aminotransferase increased [Recovered/Resolved]
  - Amylase increased [Recovered/Resolved]
  - Blood creatine phosphokinase increased [Recovered/Resolved]
  - Blood lactate dehydrogenase increased [Recovered/Resolved]
  - Blood potassium increased [Recovered/Resolved]
  - Hypotension [Recovered/Resolved]
  - Myoglobin urine present [Recovered/Resolved]
  - Serotonin syndrome [Recovered/Resolved]
  - Toxic encephalopathy [Recovered/Resolved]
  - Troponin increased [Recovered/Resolved]
  - Drug level below therapeutic [Recovered/Resolved]
